FAERS Safety Report 6358200-X (Version None)
Quarter: 2009Q3

REPORT INFORMATION
  Report Type: 
  Country: None (occurrence: None)
  Receive Date: 20090911
  Receipt Date: 20090831
  Transmission Date: 20100115
  Serious: Yes (Hospitalization)
  Sender: FDA-Public Use
  Company Number: 2009AP003591

PATIENT
  Age: 15 Year
  Sex: Male

DRUGS (2)
  1. CARBAMAZEPINE [Suspect]
     Indication: VISUAL IMPAIRMENT
     Dosage: 450 MG; BID
     Dates: start: 20090716, end: 20090801
  2. CARBAMAZEPINE [Concomitant]

REACTIONS (3)
  - MYOCARDITIS [None]
  - RASH MORBILLIFORM [None]
  - TACHYCARDIA [None]
